FAERS Safety Report 11786938 (Version 1)
Quarter: 2015Q4

REPORT INFORMATION
  Report Type: Spontaneous
  Country: US (occurrence: US)
  Receive Date: 20151130
  Receipt Date: 20151130
  Transmission Date: 20160305
  Serious: No
  Sender: FDA-Public Use
  Company Number: US-BAYER-2015-469126

PATIENT
  Age: 81 Year
  Sex: Female
  Weight: 66.67 kg

DRUGS (1)
  1. ALEVE PM [Suspect]
     Active Substance: DIPHENHYDRAMINE HYDROCHLORIDE\NAPROXEN SODIUM
     Indication: MYALGIA
     Dosage: 2 DF, QD
     Route: 048
     Dates: start: 2013

REACTIONS (1)
  - Off label use [None]

NARRATIVE: CASE EVENT DATE: 2013
